FAERS Safety Report 18444023 (Version 4)
Quarter: 2021Q2

REPORT INFORMATION
  Report Type: Report from Study
  Country: US (occurrence: US)
  Receive Date: 20201030
  Receipt Date: 20210617
  Transmission Date: 20210717
  Serious: Yes (Other)
  Sender: FDA-Public Use
  Company Number: US-CLOVIS ONCOLOGY-CLO-2020-001994

PATIENT
  Age: 80 Year
  Sex: Male
  Weight: 76.1 kg

DRUGS (9)
  1. VITAMIN D                          /00107901/ [Concomitant]
     Active Substance: ERGOCALCIFEROL
     Indication: VITAMIN D DEFICIENCY
     Dosage: UNK
     Dates: start: 20180108
  2. CALCIUM [Concomitant]
     Active Substance: CALCIUM
     Indication: SUPPLEMENTATION THERAPY
     Dosage: UNK
     Dates: start: 20151009
  3. TOPROL XL [Concomitant]
     Active Substance: METOPROLOL SUCCINATE
     Indication: HYPERTENSION
     Dosage: UNK
     Dates: start: 20160411
  4. PROSCAR [Concomitant]
     Active Substance: FINASTERIDE
     Indication: MICTURITION URGENCY
     Dosage: UNK
     Dates: start: 20110523
  5. ULTRAM [Concomitant]
     Active Substance: TRAMADOL HYDROCHLORIDE
     Indication: PROPHYLAXIS
     Dosage: UNK
     Dates: start: 20200730
  6. VITAMIN D3 [Concomitant]
     Active Substance: CHOLECALCIFEROL
     Indication: VITAMIN D DEFICIENCY
     Dosage: UNK
     Dates: start: 20110912
  7. RUCAPARIB [Suspect]
     Active Substance: RUCAPARIB
     Dosage: 400 MG, BID
     Route: 048
     Dates: start: 20200901, end: 20201019
  8. RUCAPARIB [Suspect]
     Active Substance: RUCAPARIB
     Indication: HORMONE-REFRACTORY PROSTATE CANCER
     Dosage: 600 MG, BID
     Route: 048
     Dates: start: 20200409
  9. MULTIVITAMIN                       /00097801/ [Concomitant]
     Active Substance: VITAMINS
     Indication: SUPPLEMENTATION THERAPY
     Dosage: UNK
     Dates: start: 20081229

REACTIONS (1)
  - Pancytopenia [Recovered/Resolved]

NARRATIVE: CASE EVENT DATE: 20201019
